FAERS Safety Report 6567899-4 (Version None)
Quarter: 2010Q1

REPORT INFORMATION
  Report Type: 
  Country: None (occurrence: None)
  Receive Date: 20100203
  Receipt Date: 20100128
  Transmission Date: 20100710
  Serious: Yes (Other)
  Sender: FDA-Public Use
  Company Number: PHHY2009BR48457

PATIENT
  Age: 85 Year
  Sex: Male
  Weight: 90 kg

DRUGS (3)
  1. DIOVAN [Suspect]
     Indication: BLOOD PRESSURE
     Dosage: 80 MG, BID
     Route: 048
  2. ISKEMIL [Concomitant]
     Dosage: 1 TABLET PER DAY
  3. PONDERAL [Concomitant]
     Dosage: 1 TABLET PER DAY

REACTIONS (4)
  - DEMENTIA [None]
  - FALL [None]
  - HAEMATOMA [None]
  - HEAD INJURY [None]
